FAERS Safety Report 23422111 (Version 2)
Quarter: 2024Q1

REPORT INFORMATION
  Report Type: Spontaneous
  Country: US (occurrence: US)
  Receive Date: 20240119
  Receipt Date: 20240307
  Transmission Date: 20240410
  Serious: No
  Sender: FDA-Public Use
  Company Number: US-PFIZER INC-PV202400007694

PATIENT
  Age: 74 Year
  Sex: Male
  Weight: 68.027 kg

DRUGS (1)
  1. EUCRISA [Suspect]
     Active Substance: CRISABOROLE
     Indication: Eczema
     Dosage: APPLIED TWICE DAILY

REACTIONS (1)
  - Eczema [Not Recovered/Not Resolved]
